FAERS Safety Report 21551083 (Version 1)
Quarter: 2022Q4

REPORT INFORMATION
  Report Type: Spontaneous
  Country: US (occurrence: None)
  Receive Date: 20221102
  Receipt Date: 20221102
  Transmission Date: 20230113
  Serious: Yes (Hospitalization)
  Sender: FDA-Public Use
  Company Number: None

PATIENT
  Sex: Female

DRUGS (8)
  1. PERTZYE [Suspect]
     Active Substance: PANCRELIPASE AMYLASE\PANCRELIPASE LIPASE\PANCRELIPASE PROTEASE
     Indication: Infective pulmonary exacerbation of cystic fibrosis
     Dosage: OTHER QUANTITY : 8000-28750 UNIT;?FREQUENCY : EVERY 4 HOURS;?
     Route: 048
     Dates: start: 20210120
  2. BUDESONIDE [Concomitant]
     Active Substance: BUDESONIDE
  3. HYPERSAL NEB [Concomitant]
  4. ALBUTEROL\IPRATROPIUM [Concomitant]
     Active Substance: ALBUTEROL\IPRATROPIUM
  5. PEPCID AC TAB [Concomitant]
  6. PRILOSEC POW [Concomitant]
  7. PULMOZYME [Concomitant]
     Active Substance: DORNASE ALFA
  8. TOBRAMYCIN BETHK GEQ [Concomitant]

REACTIONS (1)
  - Pneumonia [None]
